FAERS Safety Report 7786656-4 (Version None)
Quarter: 2011Q3

REPORT INFORMATION
  Report Type: 
  Country: None (occurrence: None)
  Receive Date: 20110929
  Receipt Date: 20110926
  Transmission Date: 20111222
  Serious: Yes (Other)
  Sender: FDA-Public Use
  Company Number: US-PFIZER INC-2011226194

PATIENT
  Sex: Female
  Weight: 63.492 kg

DRUGS (4)
  1. CHANTIX [Suspect]
     Dosage: 1 MG, 2X/DAY
     Route: 048
  2. XANAX [Concomitant]
     Dosage: 1 MG, UNK
  3. AMITRIPTYLINE [Concomitant]
     Dosage: 100 MG, 1X/DAY
  4. CHANTIX [Suspect]
     Indication: SMOKING CESSATION THERAPY
     Dosage: 0.5 MG, 1X/DAY
     Route: 048
     Dates: start: 20110910

REACTIONS (1)
  - SUICIDAL IDEATION [None]
